FAERS Safety Report 6072419-7 (Version None)
Quarter: 2009Q1

REPORT INFORMATION
  Report Type: 
  Country: None (occurrence: None)
  Receive Date: 20090209
  Receipt Date: 20090209
  Transmission Date: 20090719
  Serious: No
  Sender: FDA-Public Use
  Company Number: None

PATIENT
  Age: 46 Year
  Sex: Male
  Weight: 124.7392 kg

DRUGS (1)
  1. ZICAM COLD REMEDY GEL MATRIXX INITIATIVES [Suspect]
     Indication: NASOPHARYNGITIS
     Dosage: NASSAL
     Route: 045
     Dates: start: 20080105, end: 20090107

REACTIONS (2)
  - AGEUSIA [None]
  - ANOSMIA [None]
